FAERS Safety Report 4708694-8 (Version None)
Quarter: 2005Q3

REPORT INFORMATION
  Report Type: 
  Country: None (occurrence: None)
  Receive Date: 20050707
  Receipt Date: 20050630
  Transmission Date: 20060218
  Serious: Yes (Hospitalization)
  Sender: FDA-Public Use
  Company Number: PHHO2005JP10580

PATIENT
  Age: 81 Year
  Sex: Male
  Weight: 58 kg

DRUGS (7)
  1. DIOVAN [Suspect]
     Indication: HYPERTENSION
     Dosage: 40 MG, QD
     Route: 048
     Dates: start: 20030705, end: 20040912
  2. DIOVAN [Suspect]
     Dosage: 40 MG, QD
     Route: 048
     Dates: start: 20041002
  3. GASTER D [Concomitant]
     Indication: DUODENAL ULCER
     Dates: start: 20021026
  4. SELECTOL [Concomitant]
     Indication: HYPERTENSION
     Dates: start: 20030315, end: 20040912
  5. EXCEGRAN [Concomitant]
     Dates: start: 19980101
  6. ADALAT [Concomitant]
     Indication: HYPERTENSION
     Dates: start: 20031220, end: 20040912
  7. LENDORMIN [Concomitant]
     Indication: INSOMNIA

REACTIONS (5)
  - BLOOD POTASSIUM INCREASED [None]
  - DEHYDRATION [None]
  - INFECTION [None]
  - OEDEMA [None]
  - RENAL FAILURE ACUTE [None]
